FAERS Safety Report 8376906-8 (Version None)
Quarter: 2012Q2

REPORT INFORMATION
  Report Type: 
  Country: None (occurrence: None)
  Receive Date: 20120522
  Receipt Date: 20120515
  Transmission Date: 20120825
  Serious: Yes (Death, Life-Threatening, Disabling)
  Sender: FDA-Public Use
  Company Number: PHHY2009JP15151

PATIENT
  Sex: Male
  Weight: 65 kg

DRUGS (13)
  1. DEPAS [Concomitant]
     Dosage: 0.5 DF, UNK
     Route: 048
     Dates: start: 20080709
  2. EXJADE [Suspect]
     Indication: IRON OVERLOAD
     Dosage: 875 MG, DAILY
     Route: 048
     Dates: start: 20081023, end: 20081210
  3. ASPIRIN [Concomitant]
     Dosage: 200 MG, UNK
     Route: 048
     Dates: start: 20080709
  4. RISEDRONATE SODIUM [Concomitant]
     Route: 048
     Dates: start: 20081001
  5. PAXIL [Concomitant]
     Dosage: 10 MG, UNK
     Route: 048
     Dates: start: 20081125
  6. ITRACONAZOLE [Concomitant]
     Dosage: 10 ML, UNK
     Route: 048
     Dates: start: 20080709
  7. DIOVAN [Concomitant]
     Indication: HYPERTENSION
     Dosage: 40 MG, UNK
     Route: 048
     Dates: start: 20080709
  8. TETRAMIDE [Concomitant]
     Dosage: 10 MG, UNK
     Route: 048
  9. DIAZEPAM [Concomitant]
     Dosage: 3 MG, UNK
     Route: 048
     Dates: start: 20081112, end: 20081125
  10. MEXILETINE HYDROCHLORIDE [Concomitant]
     Dosage: 300 MG, UNK
     Route: 048
     Dates: start: 20080709
  11. MAGNESIUM OXIDE [Concomitant]
     Dosage: 1000 MG, UNK
     Route: 048
     Dates: start: 20080709
  12. LANSOPRAZOLE [Concomitant]
     Dosage: 15 MG, UNK
     Route: 048
     Dates: start: 20080709
  13. TICLOPIDINE HYDROCHLORIDE [Concomitant]
     Dosage: 200 MG, UNK
     Dates: start: 20080709

REACTIONS (9)
  - NEOPLASM MALIGNANT [None]
  - SEPSIS [None]
  - NEOPLASM PROGRESSION [None]
  - CATHETER SITE INFECTION [None]
  - PSEUDOMONAS INFECTION [None]
  - SEPTIC SHOCK [None]
  - GAMMA-GLUTAMYLTRANSFERASE INCREASED [None]
  - HAEMOSIDEROSIS [None]
  - BLOOD CREATININE INCREASED [None]
